FAERS Safety Report 11552090 (Version 1)
Quarter: 2015Q3

REPORT INFORMATION
  Report Type: Other
  Country: IT (occurrence: IT)
  Receive Date: 20150925
  Receipt Date: 20150925
  Transmission Date: 20151125
  Serious: Yes (Other)
  Sender: FDA-Public Use
  Company Number: IT-SUN PHARMACEUTICAL INDUSTRIES LTD-12SUNOL83P

PATIENT

DRUGS (1)
  1. OLANZAPINE 5 MG TABLET [Suspect]
     Active Substance: OLANZAPINE
     Indication: PRODUCT USED FOR UNKNOWN INDICATION
     Dosage: UNK
     Route: 048
     Dates: start: 20120701, end: 20120725

REACTIONS (1)
  - Psychiatric decompensation [Unknown]

NARRATIVE: CASE EVENT DATE: 20120701
